FAERS Safety Report 5497430-6 (Version None)
Quarter: 2007Q4

REPORT INFORMATION
  Report Type: 
  Country: None (occurrence: None)
  Receive Date: 20071025
  Receipt Date: 20070827
  Transmission Date: 20080405
  Serious: No
  Sender: FDA-Public Use
  Company Number: US-BRISTOL-MYERS SQUIBB COMPANY-13889654

PATIENT
  Age: 66 Year
  Sex: Male
  Weight: 66 kg

DRUGS (3)
  1. GLUCOPHAGE XR [Suspect]
     Indication: DIABETES MELLITUS
     Dosage: PRIOR TO CURRENT DOSE THE PATIENT WAS ON 500 MG BID,PATIENT HAD BEEN UNDER METFORMIN HCL SINCE 4YRS.
     Route: 048
  2. JANUVIA [Concomitant]
  3. PROHANCE [Concomitant]

REACTIONS (3)
  - BLOOD GLUCOSE INCREASED [None]
  - MEDICATION RESIDUE [None]
  - UPPER RESPIRATORY TRACT INFECTION [None]
